FAERS Safety Report 9239891 (Version 5)
Quarter: 2014Q1

REPORT INFORMATION
  Report Type: Report from Study
  Country: IT (occurrence: IT)
  Receive Date: 20130418
  Receipt Date: 20140211
  Transmission Date: 20141002
  Serious: Yes (Hospitalization, Other)
  Sender: FDA-Public Use
  Company Number: IT-ROCHE-1192641

PATIENT
  Age: 73 Year
  Sex: Male

DRUGS (6)
  1. VEMURAFENIB [Suspect]
     Indication: METASTATIC MALIGNANT MELANOMA
     Route: 048
     Dates: start: 20130204, end: 20130625
  2. CARDIOASPIRIN [Concomitant]
     Dosage: DRUG INDICATION: SCOAGULATION
     Route: 048
  3. TRIATEC (ITALY) [Concomitant]
     Indication: HYPERTENSION
     Route: 048
  4. CONGESCOR [Concomitant]
     Indication: CARDIAC FAILURE
     Dosage: FREQ: ONCE, DRUG INDICATION: PREVIOUS HEART FAILURE
     Route: 048
  5. VENITRIN [Concomitant]
     Indication: CARDIAC FAILURE
     Dosage: FREQ: ONCE
     Route: 050
  6. LASIX [Concomitant]
     Indication: POLYURIA
     Dosage: FREQ: ONCE
     Route: 048

REACTIONS (8)
  - Pyrexia [Recovered/Resolved]
  - Cardiac failure [Recovered/Resolved]
  - Pulmonary oedema [Recovered/Resolved]
  - Renal failure [Recovered/Resolved]
  - Dyspnoea [Recovered/Resolved]
  - Disease progression [Unknown]
  - Electrocardiogram QT prolonged [Not Recovered/Not Resolved]
  - Arthralgia [Recovered/Resolved]
